FAERS Safety Report 13419118 (Version 1)
Quarter: 2017Q2

REPORT INFORMATION
  Report Type: Spontaneous
  Country: US (occurrence: US)
  Receive Date: 20170407
  Receipt Date: 20170407
  Transmission Date: 20170830
  Serious: No
  Sender: FDA-Public Use
  Company Number: US-JNJFOC-20170318170

PATIENT
  Age: 62 Year
  Sex: Male
  Weight: 72.58 kg

DRUGS (8)
  1. RISPERDAL [Suspect]
     Active Substance: RISPERIDONE
     Indication: HALLUCINATION, AUDITORY
     Route: 048
     Dates: start: 20170127, end: 20170208
  2. RISPERDAL [Suspect]
     Active Substance: RISPERIDONE
     Indication: HALLUCINATION, AUDITORY
     Route: 048
  3. CLONOPIN [Concomitant]
     Active Substance: CLONAZEPAM
     Indication: ANXIETY
     Route: 048
  4. RISPERDAL [Suspect]
     Active Substance: RISPERIDONE
     Indication: HALLUCINATION, AUDITORY
     Route: 048
     Dates: start: 20170225
  5. RISPERDAL [Suspect]
     Active Substance: RISPERIDONE
     Indication: HALLUCINATION, AUDITORY
     Route: 048
     Dates: start: 20170220, end: 20170224
  6. METFORMIN [Concomitant]
     Active Substance: METFORMIN HYDROCHLORIDE
     Indication: DIABETES MELLITUS
     Route: 048
  7. RISPERDAL [Suspect]
     Active Substance: RISPERIDONE
     Indication: HALLUCINATION, AUDITORY
     Route: 048
     Dates: start: 20170208, end: 20170219
  8. NORTRIPTYLINE [Concomitant]
     Active Substance: NORTRIPTYLINE
     Indication: MIGRAINE
     Route: 048

REACTIONS (6)
  - Drug ineffective for unapproved indication [Unknown]
  - Product use in unapproved indication [Unknown]
  - Off label use [Unknown]
  - Salivary hypersecretion [Not Recovered/Not Resolved]
  - Depression [Recovered/Resolved]
  - Hallucination, auditory [Not Recovered/Not Resolved]

NARRATIVE: CASE EVENT DATE: 20170127
